FAERS Safety Report 14893763 (Version 1)
Quarter: 2018Q2

REPORT INFORMATION
  Report Type: Report from Study
  Country: MX (occurrence: MX)
  Receive Date: 20180514
  Receipt Date: 20180514
  Transmission Date: 20180711
  Serious: Yes (Death)
  Sender: FDA-Public Use
  Company Number: PHHY2018MX005889

PATIENT
  Age: 62 Year
  Sex: Male

DRUGS (3)
  1. CHLORAZEPAM [Concomitant]
     Active Substance: CHLORAZEPAM
     Indication: SLEEP DISORDER
     Dosage: 1/4 (5 MG) SINCE MORE THAN 10 YEARS
     Route: 065
  2. SEROQUEL [Concomitant]
     Active Substance: QUETIAPINE FUMARATE
     Indication: NERVOUS SYSTEM DISORDER
     Dosage: 1/2 25MG SINCE MORE THAN 10 YEARS
     Route: 065
  3. REVOLADE [Suspect]
     Active Substance: ELTROMBOPAG
     Indication: PRODUCT USED FOR UNKNOWN INDICATION
     Dosage: 25 MG, UNK
     Route: 065
     Dates: start: 20180318

REACTIONS (4)
  - Transplantation complication [Fatal]
  - Infarction [Fatal]
  - Pneumonia [Fatal]
  - Blood glucose increased [Fatal]

NARRATIVE: CASE EVENT DATE: 20180318
